FAERS Safety Report 7214200-9 (Version None)
Quarter: 2011Q1

REPORT INFORMATION
  Report Type: 
  Country: None (occurrence: None)
  Receive Date: 20110107
  Receipt Date: 20101229
  Transmission Date: 20110831
  Serious: Yes (Death, Other)
  Sender: FDA-Public Use
  Company Number: IT-SANOFI-AVENTIS-2011SA000727

PATIENT
  Age: 75 Year
  Sex: Female

DRUGS (6)
  1. CHLORAMBUCIL [Suspect]
     Route: 065
  2. VINCRISTINE [Suspect]
     Route: 065
  3. OFORTA [Suspect]
     Route: 065
  4. CYTOXAN [Suspect]
     Route: 065
  5. ADRIAMYCIN PFS [Suspect]
     Route: 065
  6. PREDNISONE [Suspect]
     Route: 065

REACTIONS (3)
  - DISEASE PROGRESSION [None]
  - AUTOIMMUNE THROMBOCYTOPENIA [None]
  - NEOPLASM MALIGNANT [None]
